FAERS Safety Report 18965549 (Version 1)
Quarter: 2021Q1

REPORT INFORMATION
  Report Type: Spontaneous
  Country: US (occurrence: US)
  Receive Date: 20210304
  Receipt Date: 20210304
  Transmission Date: 20210420
  Serious: Yes (Hospitalization)
  Sender: FDA-Public Use
  Company Number: US-STRONGBRIDGE BIOPHARMA-2021-STR-000072

PATIENT
  Sex: Female

DRUGS (1)
  1. KEVEYIS [Suspect]
     Active Substance: DICHLORPHENAMIDE
     Indication: MUSCLE DISORDER
     Dosage: 50 MG, BID
     Route: 048

REACTIONS (3)
  - Illness [Unknown]
  - Blood potassium decreased [Unknown]
  - Influenza [Unknown]
